FAERS Safety Report 8822878 (Version 1)
Quarter: 2012Q4

REPORT INFORMATION
  Report Type: 
  Country: US (occurrence: US)
  Receive Date: 20121003
  Receipt Date: 20121003
  Transmission Date: 20130627
  Serious: No
  Sender: FDA-Public Use
  Company Number: PHEH2012US019130

PATIENT
  Sex: Female

DRUGS (11)
  1. TASIGNA [Suspect]
     Dosage: 300 mg, BID
     Route: 048
  2. VITAMIN B COMPLEX [Concomitant]
  3. CALCIUM CITRATE [Concomitant]
     Dosage: 200 mg, UNK
  4. FISH OIL [Concomitant]
  5. VITAMIN D [Concomitant]
     Dosage: 400 U, UNK
  6. VITAMIN C [Concomitant]
     Dosage: 500 mg, UNK
  7. CENTRUM SILVER [Concomitant]
  8. HYDROCHLOROTHIAZIDE [Concomitant]
     Dosage: 12.5 mg, UNK
  9. XALATAN [Concomitant]
     Dosage: 0.005 %, UNK
  10. VITAMIN A [Concomitant]
  11. DEXILANT [Concomitant]
     Dosage: 60 mg, UNK

REACTIONS (3)
  - Incorrect dose administered [Unknown]
  - Muscle spasms [Recovering/Resolving]
  - Headache [Recovering/Resolving]
